FAERS Safety Report 7476048-X (Version None)
Quarter: 2011Q2

REPORT INFORMATION
  Report Type: 
  Country: None (occurrence: None)
  Receive Date: 20110505
  Receipt Date: 20110503
  Transmission Date: 20111010
  Serious: Yes (Other)
  Sender: FDA-Public Use
  Company Number: 2011SP001298

PATIENT
  Sex: Female

DRUGS (3)
  1. DILTIAZEM [Suspect]
     Dates: end: 20110401
  2. LATUDA [Suspect]
     Indication: BIPOLAR DISORDER
     Dosage: 80 MG; BID; ORAL; ORAL
     Route: 048
     Dates: start: 20110415, end: 20110419
  3. LATUDA [Suspect]
     Indication: BIPOLAR DISORDER
     Dosage: 80 MG; BID; ORAL; ORAL
     Route: 048
     Dates: start: 20110421

REACTIONS (2)
  - SWELLING FACE [None]
  - OEDEMA PERIPHERAL [None]
